FAERS Safety Report 15149478 (Version 5)
Quarter: 2019Q1

REPORT INFORMATION
  Report Type: Report from Study
  Country: FR (occurrence: FR)
  Receive Date: 20180716
  Receipt Date: 20190215
  Transmission Date: 20190417
  Serious: Yes (Life-Threatening, Hospitalization)
  Sender: FDA-Public Use
  Company Number: FR-SAMSUNG BIOEPIS-SB-2018-09142

PATIENT
  Age: 6 Year
  Sex: Female
  Weight: 19 kg

DRUGS (2)
  1. FLIXABI [Suspect]
     Active Substance: INFLIXIMAB
     Indication: CROHN^S DISEASE
     Route: 042
     Dates: start: 20180524, end: 20180703
  2. FLIXABI [Suspect]
     Active Substance: INFLIXIMAB
     Dosage: UNKNOWN
     Route: 065
     Dates: start: 20180703, end: 20180703

REACTIONS (8)
  - Tachycardia [Recovered/Resolved]
  - Vomiting [Recovered/Resolved]
  - Flushing [Recovered/Resolved]
  - Pallor [Recovered/Resolved]
  - Tachypnoea [Unknown]
  - Respiratory disorder [Recovered/Resolved]
  - Dyspnoea [Recovered/Resolved]
  - Anaphylactic reaction [Recovered/Resolved with Sequelae]

NARRATIVE: CASE EVENT DATE: 20180703
